FAERS Safety Report 25135176 (Version 2)
Quarter: 2025Q2

REPORT INFORMATION
  Report Type: Report from Study
  Country: US (occurrence: US)
  Receive Date: 20250328
  Receipt Date: 20250404
  Transmission Date: 20250716
  Serious: Yes (Other)
  Sender: ABBVIE
  Company Number: US-ABBVIE-6196624

PATIENT
  Age: 75 Year
  Sex: Male

DRUGS (1)
  1. SKYRIZI [Suspect]
     Active Substance: RISANKIZUMAB-RZAA
     Indication: Psoriasis
     Route: 058
     Dates: start: 20230207

REACTIONS (4)
  - Brain neoplasm [Recovered/Resolved]
  - Psoriasis [Recovering/Resolving]
  - Amnesia [Unknown]
  - Implant site scar [Recovered/Resolved]

NARRATIVE: CASE EVENT DATE: 20240201
